FAERS Safety Report 5190896-0 (Version None)
Quarter: 2006Q4

REPORT INFORMATION
  Report Type: 
  Country: None (occurrence: None)
  Receive Date: 20061222
  Receipt Date: 20061211
  Transmission Date: 20070319
  Serious: Yes (Hospitalization)
  Sender: FDA-Public Use
  Company Number: US-ELI_LILLY_AND_COMPANY-US200612001440

PATIENT
  Age: 48 Year
  Sex: Female
  Weight: 72.562 kg

DRUGS (15)
  1. ZYPREXA [Suspect]
     Indication: SUICIDE ATTEMPT
     Dosage: 15 MG, UNK
     Route: 048
     Dates: start: 20010814, end: 20021210
  2. QUETIAPINE FUMARATE [Concomitant]
     Dates: start: 20010101
  3. QUETIAPINE FUMARATE [Concomitant]
     Route: 048
     Dates: start: 20060101
  4. BUPROPION HCL [Concomitant]
     Route: 048
     Dates: start: 20010101
  5. DOXEPIN HCL [Concomitant]
     Route: 048
     Dates: start: 20010101
  6. PROZAC [Concomitant]
     Route: 048
     Dates: start: 20010101
  7. NEFAZODONE HCL [Concomitant]
     Route: 048
     Dates: start: 20010101
  8. VENLAFAXINE HCL [Concomitant]
     Route: 048
     Dates: start: 20010101
  9. DIVALPROEX SODIUM [Concomitant]
     Route: 048
     Dates: start: 20020101
  10. MIRTAZAPINE [Concomitant]
     Route: 048
     Dates: start: 20020101
  11. PAROXETINE HCL [Concomitant]
     Route: 048
     Dates: start: 20020101
  12. SERTRALINE [Concomitant]
     Route: 048
     Dates: start: 20020101
  13. RISPERIDONE [Concomitant]
     Route: 048
     Dates: start: 20040101
  14. LITHIUM CARBONATE [Concomitant]
     Route: 048
     Dates: start: 20040101
  15. ZIPRASIDONE HCL [Concomitant]
     Route: 048
     Dates: start: 20050101

REACTIONS (7)
  - BLOOD CHOLESTEROL INCREASED [None]
  - CHEST PAIN [None]
  - DIABETES MELLITUS [None]
  - POLYDIPSIA [None]
  - POLYURIA [None]
  - RENAL DISORDER [None]
  - URINARY TRACT DISORDER [None]
